FAERS Safety Report 20021553 (Version 1)
Quarter: 2021Q4

REPORT INFORMATION
  Report Type: Report from Study
  Country: US (occurrence: US)
  Receive Date: 20211101
  Receipt Date: 20211101
  Transmission Date: 20220303
  Serious: Yes (Other)
  Sender: FDA-Public Use
  Company Number: US-JAZZ-2021-US-014673

PATIENT
  Sex: Female

DRUGS (1)
  1. XYWAV [Suspect]
     Active Substance: CALCIUM OXYBATE\MAGNESIUM OXYBATE\POTASSIUM OXYBATE\SODIUM OXYBATE
     Indication: Narcolepsy
     Dosage: 4 GRAM, BID
     Route: 048
     Dates: start: 202011

REACTIONS (6)
  - Neuropathy peripheral [Unknown]
  - Rotator cuff syndrome [Not Recovered/Not Resolved]
  - Neck pain [Unknown]
  - Back pain [Recovered/Resolved]
  - Blood potassium decreased [Not Recovered/Not Resolved]
  - Hyperglycaemia [Recovering/Resolving]
